FAERS Safety Report 14512194 (Version 2)
Quarter: 2018Q3

REPORT INFORMATION
  Report Type: Spontaneous
  Country: DE (occurrence: DE)
  Receive Date: 20180209
  Receipt Date: 20180717
  Transmission Date: 20181010
  Serious: Yes (Hospitalization)
  Sender: FDA-Public Use
  Company Number: DE-ALLERGAN-1802776US

PATIENT
  Age: 84 Year
  Sex: Male
  Weight: 62.3 kg

DRUGS (22)
  1. BEVACIZUMAB. [Suspect]
     Active Substance: BEVACIZUMAB
     Dosage: 300 MG, Q2WEEKS
     Route: 042
     Dates: start: 20160610
  2. IRINOTECAN [Suspect]
     Active Substance: IRINOTECAN
     Dosage: 300 MG, UNK
     Route: 042
  3. IRINOTECAN [Suspect]
     Active Substance: IRINOTECAN
     Dosage: UNK
  4. DIFLUCAN [Concomitant]
     Active Substance: FLUCONAZOLE
     Route: 065
  5. DEX UNK [Suspect]
     Active Substance: UNSPECIFIED INGREDIENT
     Indication: PRODUCT USED FOR UNKNOWN INDICATION
     Dosage: UNK
     Route: 065
  6. IRINOTECAN [Suspect]
     Active Substance: IRINOTECAN
     Dosage: 315 MG, UNK
     Route: 042
  7. IRINOTECAN [Suspect]
     Active Substance: IRINOTECAN
     Dosage: 35 MG, UNK
     Route: 042
  8. CLEXANE [Concomitant]
     Active Substance: ENOXAPARIN SODIUM
     Route: 065
  9. BEVACIZUMAB. [Suspect]
     Active Substance: BEVACIZUMAB
     Dosage: 300 MG, Q3WEEKS
     Route: 042
     Dates: start: 20160512
  10. BEVACIZUMAB. [Suspect]
     Active Substance: BEVACIZUMAB
     Dosage: 325 MG, Q2WEEKS
     Route: 042
     Dates: start: 20160512
  11. DIFLUCAN [Concomitant]
     Active Substance: FLUCONAZOLE
     Route: 065
  12. IRINOTECAN [Suspect]
     Active Substance: IRINOTECAN
     Indication: COLORECTAL CANCER
     Dosage: 220 MG, Q2WEEKS
     Route: 042
     Dates: start: 20170119
  13. BRISERIN [Concomitant]
     Indication: HYPERTENSION
     Dosage: 0.1 MG, QD
     Route: 048
  14. CLEXANE [Concomitant]
     Active Substance: ENOXAPARIN SODIUM
     Indication: THROMBOSIS PROPHYLAXIS
     Dosage: 40 MG, QD
     Route: 065
     Dates: start: 20160512
  15. FLUOROURACIL UNK [Suspect]
     Active Substance: FLUOROURACIL
     Indication: COLORECTAL CANCER
     Dosage: UNK
     Route: 065
  16. FOLINIC ACID [Suspect]
     Active Substance: LEUCOVORIN
     Indication: PRODUCT USED FOR UNKNOWN INDICATION
     Dosage: 670 MG, UNK
     Route: 042
     Dates: start: 20160610, end: 20170120
  17. IRINOTECAN [Suspect]
     Active Substance: IRINOTECAN
     Dosage: 225 MG, UNK
     Route: 042
  18. SPASMEX [Concomitant]
     Dosage: 15 MG, QD
     Route: 048
  19. IRINOTECAN [Suspect]
     Active Substance: IRINOTECAN
     Dosage: 315 MG, Q2WEEKS
     Route: 042
     Dates: start: 20160512
  20. BEVACIZUMAB. [Suspect]
     Active Substance: BEVACIZUMAB
     Indication: COLORECTAL CANCER METASTATIC
     Dosage: 290 MG, Q2WEEKS
     Route: 042
     Dates: start: 20170119
  21. IRINOTECAN [Suspect]
     Active Substance: IRINOTECAN
     Dosage: 300 MG, Q2WEEKS
     Route: 042
     Dates: start: 20160610
  22. IRINOTECAN [Suspect]
     Active Substance: IRINOTECAN
     Dosage: 225 MG, Q2WEEKS
     Route: 042
     Dates: start: 20160628

REACTIONS (2)
  - Mucosal inflammation [Recovered/Resolved]
  - Mucosal inflammation [Recovered/Resolved]

NARRATIVE: CASE EVENT DATE: 20160617
